FAERS Safety Report 9505972 (Version 1)
Quarter: 2013Q1

REPORT INFORMATION
  Report Type: Spontaneous
  Country: US (occurrence: None)
  Receive Date: 20130305
  Receipt Date: 20130305
  Transmission Date: 20140127
  Serious: Yes (Other)
  Sender: FDA-Public Use
  Company Number: 1000040296

PATIENT
  Sex: Male

DRUGS (12)
  1. DALIRESP [Suspect]
     Route: 048
  2. DILTIAZEM CD (DILTIAZEM HYDROCHLORIDE)(DILTIAZEM HYDROCHLORIDE) [Concomitant]
  3. OMEPRAZOLE(OMEPRAZOLE)(OMEPRAZOLE) [Concomitant]
  4. ADVAIR(SERETIDE)(SERETIDE) [Concomitant]
  5. SPIRIVA(TIOTROPIUM BROMIDE)(TIOTROPIUM BROMIDE) [Concomitant]
  6. PREDNISONE(PREDNISONE)(PREDNISONE_ [Concomitant]
  7. DUONEB(COMBIVENT)(COMBIVENT) [Concomitant]
  8. DIGOXIN(DIGOXIN)(DIGOXIN) [Concomitant]
  9. PAROXETINE(PAROXETINE)(PAROXETINE) [Concomitant]
  10. MONTELUKAST [Concomitant]
  11. PRAVASTATIN(PRAVASTATIN)(PRAVASTATIN) [Concomitant]
  12. ASPIRIN(ACETYLSALICYLIC ACID)(ACETLSALICYLIC ACID) [Concomitant]

REACTIONS (7)
  - Suicidal ideation [None]
  - Restlessness [None]
  - Anxiety [None]
  - Nausea [None]
  - Diarrhoea [None]
  - Akathisia [None]
  - Mood altered [None]
